FAERS Safety Report 25969645 (Version 2)
Quarter: 2025Q4

REPORT INFORMATION
  Report Type: Spontaneous
  Country: US (occurrence: None)
  Receive Date: 20251028
  Receipt Date: 20251215
  Transmission Date: 20260119
  Serious: No
  Sender: UCB
  Company Number: US-UCBSA-2025044293

PATIENT
  Age: 27 Year

DRUGS (3)
  1. BIMZELX [Suspect]
     Active Substance: BIMEKIZUMAB-BKZX
     Indication: Hidradenitis
     Dosage: 320 MILLIGRAM, EV 4 WEEKS
  2. DOXYCYCLINE [Concomitant]
     Active Substance: DOXYCYCLINE
     Indication: Product use in unapproved indication
     Dosage: 100 MILLIGRAM
  3. SPIRONOLACTONE [Concomitant]
     Active Substance: SPIRONOLACTONE
     Indication: Product use in unapproved indication
     Dosage: 100 MILLIGRAM

REACTIONS (4)
  - Skin lesion [Unknown]
  - Pain of skin [Unknown]
  - Drug ineffective [Unknown]
  - Product dose omission issue [Unknown]
